FAERS Safety Report 12335312 (Version 1)
Quarter: 2016Q2

REPORT INFORMATION
  Report Type: Report from Study
  Country: US (occurrence: US)
  Receive Date: 20160504
  Receipt Date: 20160504
  Transmission Date: 20160815
  Serious: Yes (Other)
  Sender: FDA-Public Use
  Company Number: US-GILEAD-2016-0211568

PATIENT
  Sex: Male

DRUGS (2)
  1. SOFOSBUVIR [Suspect]
     Active Substance: SOFOSBUVIR
     Indication: HEPATITIS C
     Dosage: 1 DF, QD
     Route: 048
     Dates: start: 20160326
  2. RIBAVIRIN. [Concomitant]
     Active Substance: RIBAVIRIN

REACTIONS (9)
  - Verbal abuse [Recovering/Resolving]
  - Anger [Not Recovered/Not Resolved]
  - Dizziness [Not Recovered/Not Resolved]
  - Mania [Recovering/Resolving]
  - Procedural anxiety [Recovering/Resolving]
  - Abnormal behaviour [Recovering/Resolving]
  - Gallbladder operation [Recovered/Resolved]
  - Aggression [Recovering/Resolving]
  - Drug screen positive [Recovered/Resolved]
